FAERS Safety Report 25155210 (Version 1)
Quarter: 2025Q2

REPORT INFORMATION
  Report Type: Spontaneous
  Country: CN (occurrence: CN)
  Receive Date: 20250403
  Receipt Date: 20250403
  Transmission Date: 20250716
  Serious: Yes (Other)
  Sender: PFIZER
  Company Number: CN-PFIZER INC-PV202500039020

PATIENT
  Age: 54 Year
  Sex: Male
  Weight: 78.2 kg

DRUGS (1)
  1. CYTARABINE [Suspect]
     Active Substance: CYTARABINE
     Indication: Acute leukaemia
     Dosage: 0.10 G, 2X/DAY
     Route: 058
     Dates: start: 20250320, end: 20250325

REACTIONS (3)
  - Pyrexia [Recovering/Resolving]
  - Temperature intolerance [Unknown]
  - C-reactive protein increased [Unknown]

NARRATIVE: CASE EVENT DATE: 20250324
